FAERS Safety Report 9782016 (Version 2)
Quarter: 2013Q4

REPORT INFORMATION
  Report Type: Report from Study
  Country: NL (occurrence: NL)
  Receive Date: 20131225
  Receipt Date: 20131230
  Transmission Date: 20140711
  Serious: Yes (Other)
  Sender: FDA-Public Use
  Company Number: NL-009507513-1312NLD010101

PATIENT
  Age: 72 Year
  Sex: Male
  Weight: 93 kg

DRUGS (6)
  1. BLINDED EZETIMIBE (+) SIMVASTATIN [Suspect]
     Indication: ACUTE CORONARY SYNDROME
     Dosage: UNK
     Route: 048
     Dates: start: 20061122
  2. BLINDED THERAPY [Suspect]
     Indication: ACUTE CORONARY SYNDROME
     Dosage: UNK
     Route: 048
     Dates: start: 20061122
  3. FINASTERIDE [Suspect]
     Dosage: TOTAL DAILY DOSE 5
     Route: 048
     Dates: start: 20051025
  4. ASPIRIN [Suspect]
     Dosage: TOTAL DAILY DOSE 80
     Route: 048
     Dates: start: 19880905
  5. AMLODIPINE [Suspect]
     Dosage: TOTAL DAILY DOSE 5
     Route: 048
     Dates: start: 20060122
  6. ESOMEPRAZOLE MAGNESIUM [Suspect]
     Dosage: TOTAL DAILY DOSE 20
     Route: 048
     Dates: start: 20061228

REACTIONS (1)
  - Basal cell carcinoma [Recovered/Resolved]
